FAERS Safety Report 7105077-0 (Version None)
Quarter: 2010Q4

REPORT INFORMATION
  Report Type: 
  Country: None (occurrence: None)
  Receive Date: 20101116
  Receipt Date: 20101108
  Transmission Date: 20110411
  Serious: Yes (Hospitalization)
  Sender: FDA-Public Use
  Company Number: FR-PFIZER INC-2010145975

PATIENT
  Age: 48 Year
  Sex: Female

DRUGS (3)
  1. ATARAX [Suspect]
     Route: 048
  2. IMOVANE [Suspect]
     Route: 065
  3. EFFEXOR [Concomitant]
     Indication: AFFECTIVE DISORDER

REACTIONS (11)
  - CLONUS [None]
  - COMA [None]
  - CYTOLYTIC HEPATITIS [None]
  - DISINHIBITION [None]
  - DISORIENTATION [None]
  - ENCEPHALOPATHY [None]
  - EUPHORIC MOOD [None]
  - HYPERREFLEXIA [None]
  - PYRAMIDAL TRACT SYNDROME [None]
  - SUICIDE ATTEMPT [None]
  - URINARY RETENTION [None]
